FAERS Safety Report 15678512 (Version 1)
Quarter: 2018Q4

REPORT INFORMATION
  Report Type: Spontaneous
  Country: US (occurrence: US)
  Receive Date: 20181130
  Receipt Date: 20181130
  Transmission Date: 20190205
  Serious: No
  Sender: FDA-Public Use
  Company Number: None

PATIENT
  Age: 55 Year
  Sex: Female
  Weight: 76.5 kg

DRUGS (9)
  1. GABAPENTIN. [Concomitant]
     Active Substance: GABAPENTIN
  2. PROBIOTIC [Concomitant]
     Active Substance: PROBIOTICS NOS
  3. MULTI VITAMIN [Concomitant]
     Active Substance: VITAMINS
  4. VALACYCLOVIR [Concomitant]
     Active Substance: VALACYCLOVIR HYDROCHLORIDE
  5. PEPCID 20 [Concomitant]
  6. BACLOFEN (I TOOK 1/2 PILL AM AND 1/2 PILL PM) [Suspect]
     Active Substance: BACLOFEN
     Indication: MUSCLE SPASMS
     Dosage: ?          OTHER FREQUENCY:1/2 PILL AM + PM;?
     Route: 048
     Dates: start: 20180401, end: 20181109
  7. BACLOFEN (I TOOK 1/2 PILL AM AND 1/2 PILL PM) [Suspect]
     Active Substance: BACLOFEN
     Indication: ARTHRALGIA
     Dosage: ?          OTHER FREQUENCY:1/2 PILL AM + PM;?
     Route: 048
     Dates: start: 20180401, end: 20181109
  8. FISH OIL [Concomitant]
     Active Substance: FISH OIL
  9. VITAMIN C WITH D3 [Concomitant]

REACTIONS (4)
  - Dyspnoea [None]
  - Growth of eyelashes [None]
  - Therapeutic response unexpected [None]
  - Hypertension [None]

NARRATIVE: CASE EVENT DATE: 20181018
